FAERS Safety Report 8313255-8 (Version None)
Quarter: 2012Q2

REPORT INFORMATION
  Report Type: 
  Country: None (occurrence: None)
  Receive Date: 20120426
  Receipt Date: 20120417
  Transmission Date: 20120825
  Serious: Yes (Hospitalization, Other)
  Sender: FDA-Public Use
  Company Number: AT-B.I. PHARMACEUTICALS,INC./RIDGEFIELD-2012-AP-00286AP

PATIENT
  Sex: Female
  Weight: 85 kg

DRUGS (14)
  1. UROSIN 300 [Concomitant]
     Indication: HYPERURICAEMIA
     Dosage: 1 ANZ
     Dates: start: 20120315
  2. LOVENOX 40 [Concomitant]
     Indication: THROMBOSIS PROPHYLAXIS
     Dosage: 1 ANZ
  3. NOVALGIN [Suspect]
     Indication: ANALGESIC THERAPY
     Dosage: 90 ANZ
     Dates: start: 20120314
  4. INKONTAN [Concomitant]
     Indication: INCONTINENCE
     Dosage: 30 MG
  5. PRADAXA [Suspect]
     Indication: ATRIAL FIBRILLATION
     Dosage: 300 MG
     Route: 048
     Dates: start: 20120321, end: 20120326
  6. ATACAND HCT [Concomitant]
     Indication: CARDIAC FAILURE
     Dosage: 16/12.5 MG
     Route: 048
  7. CONCOR 5 MG [Concomitant]
     Indication: CARDIAC FAILURE
  8. MAXI KALZ VIT D3 [Concomitant]
     Indication: OSTEOPOROSIS
     Dosage: 1 ANZ
     Route: 048
  9. OSTEOVIT D3 [Concomitant]
     Indication: OSTEOPOROSIS
     Dosage: 30 DROPS PER WEEK
  10. PANTOPRAZOLE [Concomitant]
     Indication: PROPHYLAXIS AGAINST GASTROINTESTINAL ULCER
     Dosage: 20 MG
     Route: 048
  11. MOLAXOLE [Concomitant]
     Indication: CONSTIPATION
     Dosage: 1 ANZ
  12. LASIX [Concomitant]
     Indication: CARDIAC FAILURE
     Route: 048
     Dates: end: 20120319
  13. CONCOR 5 MG [Concomitant]
     Indication: ATRIAL FIBRILLATION
     Dosage: 2.5 MG
     Route: 048
  14. LASIX [Concomitant]
     Route: 042
     Dates: start: 20120320

REACTIONS (2)
  - RENAL FAILURE [None]
  - HAEMATOMA [None]
